FAERS Safety Report 8132075-0 (Version None)
Quarter: 2012Q1

REPORT INFORMATION
  Report Type: 
  Country: None (occurrence: None)
  Receive Date: 20120213
  Receipt Date: 20120209
  Transmission Date: 20120608
  Serious: Yes (Hospitalization, Disabling, Other)
  Sender: FDA-Public Use
  Company Number: US-PFIZER INC-2009165287

PATIENT
  Sex: Male

DRUGS (1)
  1. CHANTIX [Suspect]
     Indication: SMOKING CESSATION THERAPY
     Dosage: 1 MG, UNK
     Dates: start: 20070927, end: 20071005

REACTIONS (11)
  - MOOD SWINGS [None]
  - ABNORMAL BEHAVIOUR [None]
  - DEPRESSION [None]
  - SUICIDE ATTEMPT [None]
  - MOUTH INJURY [None]
  - FACE INJURY [None]
  - LOSS OF CONSCIOUSNESS [None]
  - AGGRESSION [None]
  - ANOSMIA [None]
  - EYE INJURY [None]
  - PANIC ATTACK [None]
